FAERS Safety Report 17217842 (Version 1)
Quarter: 2019Q4

REPORT INFORMATION
  Report Type: Spontaneous
  Country: US (occurrence: US)
  Receive Date: 20191231
  Receipt Date: 20191231
  Transmission Date: 20200122
  Serious: Yes (Other)
  Sender: FDA-Public Use
  Company Number: US-ROCHE-2505249

PATIENT

DRUGS (1)
  1. VALIUM [Suspect]
     Active Substance: DIAZEPAM
     Indication: PRODUCT USED FOR UNKNOWN INDICATION
     Dosage: ONGOING UNKNOWN
     Route: 065

REACTIONS (7)
  - Impaired gastric emptying [Unknown]
  - Alopecia [Unknown]
  - Non-small cell lung cancer [Unknown]
  - Blood glucose abnormal [Unknown]
  - Blood pressure decreased [Unknown]
  - Weight decreased [Unknown]
  - Malaise [Unknown]
